FAERS Safety Report 6359093-7 (Version None)
Quarter: 2009Q3

REPORT INFORMATION
  Report Type: 
  Country: None (occurrence: None)
  Receive Date: 20090917
  Receipt Date: 20070405
  Transmission Date: 20100115
  Serious: Yes (Death, Hospitalization, Other)
  Sender: FDA-Public Use
  Company Number: US-ASTRAZENECA-2006UW10989

PATIENT
  Age: 19228 Day
  Sex: Female
  Weight: 47.6 kg

DRUGS (67)
  1. SEROQUEL [Suspect]
     Indication: BIPOLAR DISORDER
     Route: 048
     Dates: start: 20021227
  2. SEROQUEL [Suspect]
     Indication: DEPRESSION
     Route: 048
     Dates: start: 20021227
  3. SEROQUEL [Suspect]
     Indication: ANXIETY
     Route: 048
     Dates: start: 20021227
  4. SEROQUEL [Suspect]
     Route: 048
     Dates: start: 20030102
  5. SEROQUEL [Suspect]
     Route: 048
     Dates: start: 20030102
  6. SEROQUEL [Suspect]
     Route: 048
     Dates: start: 20030102
  7. SEROQUEL [Suspect]
     Route: 048
     Dates: start: 20030626
  8. SEROQUEL [Suspect]
     Route: 048
     Dates: start: 20030626
  9. SEROQUEL [Suspect]
     Route: 048
     Dates: start: 20030626
  10. SEROQUEL [Suspect]
     Dosage: DOSE IN FEB-2006
     Route: 048
  11. SEROQUEL [Suspect]
     Dosage: DOSE IN FEB-2006
     Route: 048
  12. SEROQUEL [Suspect]
     Dosage: DOSE IN FEB-2006
     Route: 048
  13. SEROQUEL [Suspect]
     Route: 048
     Dates: start: 20060407
  14. SEROQUEL [Suspect]
     Route: 048
     Dates: start: 20060407
  15. SEROQUEL [Suspect]
     Route: 048
     Dates: start: 20060407
  16. SEROQUEL [Suspect]
     Route: 048
     Dates: start: 20060821
  17. SEROQUEL [Suspect]
     Route: 048
     Dates: start: 20060821
  18. SEROQUEL [Suspect]
     Route: 048
     Dates: start: 20060821
  19. SEROQUEL [Suspect]
     Route: 048
     Dates: start: 20060821
  20. SEROQUEL [Suspect]
     Route: 048
     Dates: start: 20060821
  21. SEROQUEL [Suspect]
     Route: 048
     Dates: start: 20060821
  22. SEROQUEL [Suspect]
     Route: 048
     Dates: start: 20060925
  23. SEROQUEL [Suspect]
     Route: 048
     Dates: start: 20060925
  24. SEROQUEL [Suspect]
     Route: 048
     Dates: start: 20060925
  25. SEROQUEL [Suspect]
     Route: 048
     Dates: start: 20061017
  26. SEROQUEL [Suspect]
     Route: 048
     Dates: start: 20061017
  27. SEROQUEL [Suspect]
     Route: 048
     Dates: start: 20061017
  28. SEROQUEL [Suspect]
     Route: 048
     Dates: start: 20061001
  29. SEROQUEL [Suspect]
     Route: 048
     Dates: start: 20061001
  30. SEROQUEL [Suspect]
     Route: 048
     Dates: start: 20061001
  31. SEROQUEL [Suspect]
     Dosage: BEING TAKEN IN FEB 2007, 600 MG AT NIGHT
     Route: 048
  32. SEROQUEL [Suspect]
     Dosage: BEING TAKEN IN FEB 2007, 600 MG AT NIGHT
     Route: 048
  33. SEROQUEL [Suspect]
     Dosage: BEING TAKEN IN FEB 2007, 600 MG AT NIGHT
     Route: 048
  34. SEROQUEL [Suspect]
     Route: 048
     Dates: start: 20030101, end: 20070101
  35. SEROQUEL [Suspect]
     Route: 048
     Dates: start: 20030101, end: 20070101
  36. SEROQUEL [Suspect]
     Route: 048
     Dates: start: 20030101, end: 20070101
  37. ZYPREXA [Concomitant]
     Route: 048
     Dates: start: 20000525
  38. ZYPREXA [Concomitant]
     Route: 048
     Dates: start: 20021227
  39. ZYPREXA [Concomitant]
     Route: 048
     Dates: start: 20030829
  40. ZYPREXA [Concomitant]
     Route: 048
     Dates: start: 20031002
  41. ZYPREXA [Concomitant]
     Route: 048
     Dates: start: 20050614
  42. ZYPREXA [Concomitant]
     Route: 048
     Dates: start: 20050628, end: 20050802
  43. VISTARIL [Concomitant]
     Dates: start: 19961121
  44. VISTARIL [Concomitant]
     Dosage: BID, 25 MG AS REQUIRED
     Route: 048
     Dates: start: 20021227
  45. VISTARIL [Concomitant]
     Dosage: QID, 25 MG AS REQUIRED
     Route: 048
     Dates: start: 20030102
  46. VISTARIL [Concomitant]
     Route: 048
     Dates: start: 20030203, end: 20030829
  47. VISTARIL [Concomitant]
     Dosage: BID, 25 MG AS REQUIRED
     Route: 048
     Dates: start: 20040525, end: 20040922
  48. RISPERDAL [Concomitant]
     Route: 048
     Dates: start: 20050802
  49. RISPERDAL [Concomitant]
     Dosage: BEING TAKEN IN JAN 2007
     Route: 048
  50. PEXEVA [Concomitant]
     Route: 048
     Dates: start: 20060307
  51. PEXEVA [Concomitant]
     Route: 048
     Dates: start: 20070108
  52. LAMITOL [Concomitant]
     Dosage: ORANGE KIT AS DIRECTED
  53. LAMITOL [Concomitant]
     Dosage: 100 AT NIGHT
  54. PAXIL [Concomitant]
     Indication: DEPRESSION
     Dates: start: 19940104
  55. PAXIL [Concomitant]
     Indication: BIPOLAR DISORDER
     Dates: start: 19940104
  56. PAXIL [Concomitant]
     Dates: start: 20061017
  57. PAXIL [Concomitant]
     Dates: start: 20061017
  58. PAXIL [Concomitant]
     Dates: start: 20060801
  59. PAXIL [Concomitant]
     Dates: start: 20060801
  60. PAXIL [Concomitant]
     Dates: start: 20060701
  61. PAXIL [Concomitant]
     Dates: start: 20060701
  62. TRAZODONE [Concomitant]
     Indication: INSOMNIA
     Dates: start: 19941214
  63. TRAZODONE [Concomitant]
     Dates: start: 20000622
  64. LEXAPRO [Concomitant]
     Route: 048
  65. PROTONIX [Concomitant]
     Route: 048
  66. PROTONIX [Concomitant]
     Route: 048
     Dates: start: 20061012
  67. ATIVAN [Concomitant]
     Dosage: BEING TAKEN IN JAN 2007, 1 MG DAILY
     Route: 048

REACTIONS (50)
  - ABDOMINAL PAIN [None]
  - ABDOMINAL PAIN UPPER [None]
  - ACQUIRED IMMUNODEFICIENCY SYNDROME [None]
  - ANAEMIA [None]
  - ANGIOMYOLIPOMA [None]
  - APHTHOUS STOMATITIS [None]
  - BACK PAIN [None]
  - BILIARY TRACT DISORDER [None]
  - BIPOLAR I DISORDER [None]
  - CELLULITIS [None]
  - CONTUSION [None]
  - CYSTITIS [None]
  - DEATH [None]
  - DEHYDRATION [None]
  - DERMATITIS ALLERGIC [None]
  - DIAPHRAGMATIC DISORDER [None]
  - DUODENAL ULCER [None]
  - DYSTHYMIC DISORDER [None]
  - FLATULENCE [None]
  - GASTRIC ULCER [None]
  - GASTROOESOPHAGEAL REFLUX DISEASE [None]
  - GINGIVITIS [None]
  - HAEMANGIOMA [None]
  - HEAD INJURY [None]
  - HERPES SIMPLEX [None]
  - HIV INFECTION [None]
  - HYPOTENSION [None]
  - INSOMNIA [None]
  - LEUKOPENIA [None]
  - MUSCLE SPASMS [None]
  - NAUSEA [None]
  - OESOPHAGITIS [None]
  - OPEN WOUND [None]
  - OSTEOPENIA [None]
  - PAIN IN EXTREMITY [None]
  - PANCREATITIS [None]
  - PEPTIC ULCER [None]
  - PRURITUS [None]
  - PULMONARY VALVE INCOMPETENCE [None]
  - PYREXIA [None]
  - RASH PRURITIC [None]
  - RECTAL HAEMORRHAGE [None]
  - SKIN LESION [None]
  - SPINAL OSTEOARTHRITIS [None]
  - STOMATITIS [None]
  - SUICIDAL IDEATION [None]
  - SYNCOPE [None]
  - URTICARIA [None]
  - VOMITING [None]
  - WEIGHT INCREASED [None]
